FAERS Safety Report 4337751-3 (Version None)
Quarter: 2004Q2

REPORT INFORMATION
  Report Type: 
  Country: None (occurrence: None)
  Receive Date: 20040407
  Receipt Date: 20040324
  Transmission Date: 20050107
  Serious: Yes (Other)
  Sender: FDA-Public Use
  Company Number: NSADSS2002005900

PATIENT
  Age: 65 Year
  Sex: Female

DRUGS (6)
  1. REMICADE [Suspect]
     Dosage: , 1 IN 1 AS NECESSARY, INTRAVENOUS DRIP
     Route: 041
     Dates: start: 20000621, end: 20011025
  2. CORTICOSTEROIDS (CORTICOSTEROIDS) [Suspect]
  3. METHOTREXATE [Suspect]
  4. PAROXETINE HCL [Concomitant]
  5. ACETAMINOPHEN [Concomitant]
  6. OMEPRAZOLE [Concomitant]

REACTIONS (1)
  - TUBERCULOSIS OF GENITOURINARY SYSTEM [None]
